FAERS Safety Report 18625020 (Version 1)
Quarter: 2020Q4

REPORT INFORMATION
  Report Type: Report from Study
  Country: KR (occurrence: KR)
  Receive Date: 20201217
  Receipt Date: 20201217
  Transmission Date: 20210114
  Serious: Yes (Hospitalization)
  Sender: FDA-Public Use
  Company Number: KR-CELLTRION INC.-2020KR033605

PATIENT

DRUGS (7)
  1. RAMUCIRUMAB [Suspect]
     Active Substance: RAMUCIRUMAB
     Indication: GASTRIC CANCER RECURRENT
     Dosage: 480 MG TOTAL DAILY DOSE (8 MG/KG (BIWEEKLY))
     Route: 042
     Dates: start: 20201019, end: 20201201
  2. PACLITAXEL. [Suspect]
     Active Substance: PACLITAXEL
     Indication: GASTRIC CANCER RECURRENT
     Dosage: 110 MG TOTAL DAILY DOSE, (70 MG/M2 (WEEKLY))
     Route: 042
     Dates: start: 20201019, end: 20201201
  3. DEXAMETHASONE. [Concomitant]
     Active Substance: DEXAMETHASONE
     Indication: PREMEDICATION
     Dosage: 5 MG
     Route: 042
     Dates: start: 20201117, end: 20201201
  4. TRASTUZUMAB (UNKNOWN) [Suspect]
     Active Substance: TRASTUZUMAB
     Indication: GASTRIC CANCER RECURRENT
     Dosage: 120 MG TOTAL DAILY DOSE (2 MG/KG (WEEKLY))
     Route: 042
     Dates: start: 20201019, end: 20201201
  5. CHLORPHENIRAMINE. [Concomitant]
     Active Substance: CHLORPHENIRAMINE
     Indication: PREMEDICATION
     Dosage: 20 MG
     Route: 042
     Dates: start: 20201117, end: 20201201
  6. GASTER [Concomitant]
     Active Substance: FAMOTIDINE
     Indication: PREMEDICATION
     Dosage: 5 MG
     Route: 042
     Dates: start: 20201117, end: 20201201
  7. TAMIPOOL [Concomitant]
     Active Substance: VITAMINS
     Indication: VITAMIN SUPPLEMENTATION
     Dosage: 1 VIAL
     Route: 042
     Dates: start: 20201124, end: 20201124

REACTIONS (4)
  - Asthenia [Recovering/Resolving]
  - Condition aggravated [Unknown]
  - Underdose [Unknown]
  - Off label use [Unknown]

NARRATIVE: CASE EVENT DATE: 20201208
